FAERS Safety Report 4319498-2 (Version None)
Quarter: 2004Q1

REPORT INFORMATION
  Report Type: 
  Country: None (occurrence: None)
  Receive Date: 20040319
  Receipt Date: 20040122
  Transmission Date: 20041129
  Serious: Yes (Other)
  Sender: FDA-Public Use
  Company Number: PHEH2004US01101

PATIENT
  Age: 57 Year
  Sex: Female
  Weight: 58 kg

DRUGS (5)
  1. STARLIX [Suspect]
     Indication: DIABETES MELLITUS
     Dosage: 120 MG, TID
     Route: 048
     Dates: start: 20040105, end: 20040121
  2. SYNTHROID [Concomitant]
     Indication: HYPOTHYROIDISM
     Dosage: .2 MG, QD
     Route: 048
     Dates: start: 20000610
  3. COZAAR [Concomitant]
     Indication: HYPERTENSION
     Dosage: 50 MG, QD
     Route: 048
     Dates: start: 20000906
  4. ARIMIDEX [Concomitant]
     Indication: BREAST CANCER
     Dosage: UNK, QD
     Route: 048
     Dates: start: 20010301
  5. GLUCOPHAGE [Concomitant]
     Indication: DIABETES MELLITUS NON-INSULIN-DEPENDENT
     Dosage: 500 MG, BID
     Route: 048
     Dates: start: 20030603

REACTIONS (5)
  - BACTERIA URINE [None]
  - DIABETES MELLITUS INADEQUATE CONTROL [None]
  - ESCHERICHIA INFECTION [None]
  - PYELONEPHRITIS [None]
  - RENAL PAIN [None]
